FAERS Safety Report 9105498 (Version 1)
Quarter: 2013Q1

REPORT INFORMATION
  Report Type: Spontaneous
  Country: FR (occurrence: FR)
  Receive Date: 20130220
  Receipt Date: 20130220
  Transmission Date: 20140127
  Serious: Yes (Hospitalization)
  Sender: FDA-Public Use
  Company Number: FR-ASTRAZENECA-2013SE09853

PATIENT
  Age: 8639 Day
  Sex: Female

DRUGS (8)
  1. INEXIUM [Suspect]
     Route: 048
     Dates: start: 20121123
  2. DAFALGAN [Suspect]
     Route: 048
     Dates: start: 20121123
  3. TAZOCILLINE [Suspect]
     Route: 042
     Dates: start: 20121120
  4. GENTAMICINE [Suspect]
     Route: 042
     Dates: start: 20121120
  5. TRIATEC [Concomitant]
  6. LASILIX [Concomitant]
  7. CARDENSIEL [Concomitant]
  8. DIFFU K [Concomitant]

REACTIONS (2)
  - Acute generalised exanthematous pustulosis [Recovered/Resolved]
  - Pruritus [Recovered/Resolved]
